FAERS Safety Report 18309860 (Version 2)
Quarter: 2020Q4

REPORT INFORMATION
  Report Type: Report from Study
  Country: US (occurrence: US)
  Receive Date: 20200925
  Receipt Date: 20201007
  Transmission Date: 20210113
  Serious: No
  Sender: FDA-Public Use
  Company Number: US-SA-2020SA254681

PATIENT

DRUGS (3)
  1. DUPILUMAB [Suspect]
     Active Substance: DUPILUMAB
     Indication: ASTHMA
     Dosage: 600 MG, 1X
     Route: 058
     Dates: start: 20200910, end: 20200910
  2. DUPILUMAB [Suspect]
     Active Substance: DUPILUMAB
     Dosage: 300 MG, QOW
     Route: 058
     Dates: start: 20200922
  3. INFLUENZA VACCINE [Suspect]
     Active Substance: INFLUENZA VIRUS VACCINE
     Dosage: UNK
     Dates: start: 20200917

REACTIONS (13)
  - Pyrexia [Unknown]
  - Vision blurred [Recovered/Resolved]
  - Illness [Unknown]
  - Illness [Recovered/Resolved]
  - Disorientation [Unknown]
  - Photophobia [Not Recovered/Not Resolved]
  - Visual impairment [Unknown]
  - Dizziness [Unknown]
  - Pain [Unknown]
  - Nausea [Unknown]
  - Eye pain [Not Recovered/Not Resolved]
  - Product use issue [Unknown]
  - Upper respiratory tract infection [Unknown]

NARRATIVE: CASE EVENT DATE: 202009
